FAERS Safety Report 5767782-8 (Version None)
Quarter: 2008Q2

REPORT INFORMATION
  Report Type: 
  Country: None (occurrence: None)
  Receive Date: 20080612
  Receipt Date: 20080604
  Transmission Date: 20081010
  Serious: Yes (Hospitalization)
  Sender: FDA-Public Use
  Company Number: BR-ABBOTT-07P-020-0425699-00

PATIENT
  Sex: Female
  Weight: 52 kg

DRUGS (5)
  1. HUMIRA [Suspect]
     Indication: RHEUMATOID ARTHRITIS
     Route: 058
     Dates: start: 20071023
  2. LEFLUNOMIDE [Concomitant]
     Indication: RHEUMATOID ARTHRITIS
  3. PENTOXIFYLLINE [Concomitant]
     Indication: CARDIOVASCULAR DISORDER
  4. LOSARTAN POTASSIUM [Concomitant]
     Indication: BLOOD PRESSURE MANAGEMENT
  5. ERITROPOYETINA [Concomitant]
     Indication: ANAEMIA

REACTIONS (4)
  - CARDIOVASCULAR DISORDER [None]
  - FINGER AMPUTATION [None]
  - LOCALISED INFECTION [None]
  - URINARY TRACT INFECTION [None]
